FAERS Safety Report 11172366 (Version 5)
Quarter: 2015Q3

REPORT INFORMATION
  Report Type: Spontaneous
  Country: US (occurrence: US)
  Receive Date: 20150608
  Receipt Date: 20150826
  Transmission Date: 20151125
  Serious: Yes (Death, Hospitalization, Other)
  Sender: FDA-Public Use
  Company Number: US-UNITED THERAPEUTICS-UNT-2015-005892

PATIENT
  Age: 68 Year
  Sex: Male
  Weight: 56.24 kg

DRUGS (5)
  1. REMODULIN [Suspect]
     Active Substance: TREPROSTINIL
     Dosage: 0.079 ?G/KG, CONTINUING
     Route: 041
  2. REMODULIN [Suspect]
     Active Substance: TREPROSTINIL
     Dosage: 0.079 ?G/KG, CONTINUING
     Route: 041
     Dates: start: 20141218
  3. REMODULIN [Suspect]
     Active Substance: TREPROSTINIL
     Indication: PULMONARY ARTERIAL HYPERTENSION
     Dosage: 0.079 ?G/KG, CONTINUING
     Route: 041
     Dates: start: 20140812
  4. REVATIO [Concomitant]
     Active Substance: SILDENAFIL CITRATE
     Indication: PRODUCT USED FOR UNKNOWN INDICATION
  5. REMODULIN [Suspect]
     Active Substance: TREPROSTINIL
     Dosage: 0.079 ?G/KG, CONTINUING
     Route: 041

REACTIONS (7)
  - Dyspnoea [Not Recovered/Not Resolved]
  - Gastrointestinal haemorrhage [Fatal]
  - Fluid overload [Fatal]
  - Renal failure [Unknown]
  - Haematemesis [Recovered/Resolved]
  - Pulmonary arterial hypertension [Unknown]
  - Arteriovenous malformation [Fatal]

NARRATIVE: CASE EVENT DATE: 2015
